FAERS Safety Report 18996305 (Version 1)
Quarter: 2021Q1

REPORT INFORMATION
  Report Type: Spontaneous
  Country: US (occurrence: US)
  Receive Date: 20210310
  Receipt Date: 20210310
  Transmission Date: 20210420
  Serious: Yes (Death)
  Sender: FDA-Public Use
  Company Number: None

PATIENT
  Age: 51 Year
  Sex: Female
  Weight: 117 kg

DRUGS (8)
  1. CARVEDILOL. [Concomitant]
     Active Substance: CARVEDILOL
     Dates: start: 20180101, end: 20210202
  2. OXYBUTININ [Concomitant]
     Active Substance: OXYBUTYNIN
     Dates: start: 20130101, end: 20210202
  3. SPIRONOLACTONE. [Concomitant]
     Active Substance: SPIRONOLACTONE
     Dates: start: 20180101, end: 20210202
  4. AMPYRA [Concomitant]
     Active Substance: DALFAMPRIDINE
     Dates: start: 20050101, end: 20210202
  5. OTEZLA [Concomitant]
     Active Substance: APREMILAST
     Dates: start: 20200901, end: 20210202
  6. OCRELIZUMAB. [Suspect]
     Active Substance: OCRELIZUMAB
     Indication: MULTIPLE SCLEROSIS
     Dosage: ?          OTHER FREQUENCY:EVERY 6 MONTHS;?
     Route: 042
     Dates: start: 20170801, end: 20201211
  7. VITAMIN D [Concomitant]
     Active Substance: VITAMIN D NOS
     Dates: start: 20130101, end: 20210202
  8. BACLOFEN. [Concomitant]
     Active Substance: BACLOFEN
     Dates: start: 20140101, end: 20210202

REACTIONS (1)
  - Oxygen saturation decreased [None]

NARRATIVE: CASE EVENT DATE: 20210202
